FAERS Safety Report 12920838 (Version 1)
Quarter: 2016Q4

REPORT INFORMATION
  Report Type: Report from Study
  Country: US (occurrence: US)
  Receive Date: 20161107
  Receipt Date: 20161107
  Transmission Date: 20170207
  Serious: Yes (Other)
  Sender: FDA-Public Use
  Company Number: US-JNJFOC-20160902942

PATIENT
  Age: 59 Year
  Sex: Female

DRUGS (5)
  1. IMBRUVICA [Suspect]
     Active Substance: IBRUTINIB
     Indication: CHRONIC LYMPHOCYTIC LEUKAEMIA
     Route: 048
     Dates: start: 20160805
  2. IMBRUVICA [Suspect]
     Active Substance: IBRUTINIB
     Indication: CHRONIC LYMPHOCYTIC LEUKAEMIA
     Route: 048
     Dates: start: 20160712
  3. IMBRUVICA [Suspect]
     Active Substance: IBRUTINIB
     Indication: CHRONIC LYMPHOCYTIC LEUKAEMIA
     Route: 048
  4. IMBRUVICA [Suspect]
     Active Substance: IBRUTINIB
     Indication: CHRONIC LYMPHOCYTIC LEUKAEMIA
     Route: 048
     Dates: start: 20160826
  5. IMBRUVICA [Suspect]
     Active Substance: IBRUTINIB
     Indication: CHRONIC LYMPHOCYTIC LEUKAEMIA
     Route: 048

REACTIONS (10)
  - Feeling abnormal [Recovered/Resolved]
  - Intraocular pressure increased [Not Recovered/Not Resolved]
  - Heart rate increased [Recovered/Resolved]
  - Off label use [Not Recovered/Not Resolved]
  - Dizziness [Recovered/Resolved]
  - Contusion [Not Recovered/Not Resolved]
  - Product use issue [Not Recovered/Not Resolved]
  - Heart rate irregular [Recovered/Resolved]
  - Gastrooesophageal reflux disease [Unknown]
  - Retinal vascular occlusion [Not Recovered/Not Resolved]

NARRATIVE: CASE EVENT DATE: 20160826
